FAERS Safety Report 7783771-6 (Version None)
Quarter: 2011Q3

REPORT INFORMATION
  Report Type: 
  Country: None (occurrence: None)
  Receive Date: 20110928
  Receipt Date: 20110525
  Transmission Date: 20111222
  Serious: No
  Sender: FDA-Public Use
  Company Number: US-BAYER-2011-046969

PATIENT
  Sex: Female
  Weight: 91 kg

DRUGS (2)
  1. ALEVE (CAPLET) [Suspect]
     Indication: ANALGESIC THERAPY
     Dosage: 220 MG, TID
     Route: 048
     Dates: start: 20110512, end: 20110525
  2. ALEVE (CAPLET) [Suspect]
     Dosage: 1100 MG, 5 TABLETS IN A DAY
     Route: 048
     Dates: start: 20110501

REACTIONS (1)
  - NO ADVERSE EVENT [None]
